FAERS Safety Report 7751120-5 (Version None)
Quarter: 2011Q3

REPORT INFORMATION
  Report Type: 
  Country: None (occurrence: None)
  Receive Date: 20110912
  Receipt Date: 20110829
  Transmission Date: 20111222
  Serious: Yes (Other)
  Sender: FDA-Public Use
  Company Number: 2011MA001494

PATIENT
  Sex: Female

DRUGS (18)
  1. METOCLOPRAMIDE [Suspect]
     Indication: DYSPEPSIA
     Dosage: 10 MG, PO
     Route: 048
     Dates: start: 19960330, end: 20110608
  2. RELAFEN [Concomitant]
  3. SULINDAC [Concomitant]
  4. LEVSIN [Concomitant]
  5. ALBUTEROL [Concomitant]
  6. HISTINEX [Concomitant]
  7. NAPROXEN [Concomitant]
  8. PRAVACHOL [Concomitant]
  9. PREDNISOLONE [Concomitant]
  10. BIAXIN [Concomitant]
  11. EASIVENT [Concomitant]
  12. ZITHROMAX [Concomitant]
  13. COUMADIN [Concomitant]
  14. MACROBID [Concomitant]
  15. AMOXIL [Concomitant]
  16. CELEBREX [Concomitant]
  17. FAMVIR [Concomitant]
  18. SSKI [Concomitant]

REACTIONS (8)
  - ECONOMIC PROBLEM [None]
  - TARDIVE DYSKINESIA [None]
  - AREFLEXIA [None]
  - EMOTIONAL DISORDER [None]
  - DYSPNOEA [None]
  - EXTRAPYRAMIDAL DISORDER [None]
  - DEMENTIA [None]
  - GAIT DISTURBANCE [None]
